FAERS Safety Report 8153697-7 (Version None)
Quarter: 2012Q1

REPORT INFORMATION
  Report Type: 
  Country: None (occurrence: None)
  Receive Date: 20120221
  Receipt Date: 20120209
  Transmission Date: 20120608
  Serious: No
  Sender: FDA-Public Use
  Company Number: US-B.I. PHARMACEUTICALS,INC./RIDGEFIELD-2012-BP-02511BP

PATIENT
  Age: 67 Year
  Sex: Male

DRUGS (10)
  1. CARDIAZEM [Concomitant]
     Dates: start: 20120101
  2. DIGOXIN [Concomitant]
     Dates: start: 20120101
  3. LOVAZA [Concomitant]
  4. MILK THISTLE [Concomitant]
     Indication: HEPATIC ENZYME INCREASED
     Dates: start: 20020101
  5. SOTALOL HCL [Concomitant]
  6. METOPROLOL TARTRATE [Concomitant]
  7. PRADAXA [Suspect]
     Indication: ATRIAL FIBRILLATION
     Dosage: 300 MG
     Route: 048
     Dates: start: 20120101, end: 20120101
  8. CALCIUM WITH D [Concomitant]
  9. PRADAXA [Suspect]
     Dosage: 150 MG
     Route: 048
     Dates: start: 20120101
  10. ASPIRIN [Concomitant]

REACTIONS (1)
  - CHROMATURIA [None]
